FAERS Safety Report 14952176 (Version 2)
Quarter: 2018Q4

REPORT INFORMATION
  Report Type: Spontaneous
  Country: US (occurrence: US)
  Receive Date: 20180530
  Receipt Date: 20181129
  Transmission Date: 20190204
  Serious: No
  Sender: FDA-Public Use
  Company Number: US-SA-2018SA123499

PATIENT
  Age: 50 Year
  Sex: Male

DRUGS (1)
  1. NASACORT ALLERGY 24HR [Suspect]
     Active Substance: TRIAMCINOLONE ACETONIDE
     Indication: MULTIPLE ALLERGIES
     Dosage: 60 DF,QD
     Route: 065
     Dates: start: 20180421, end: 20180422

REACTIONS (2)
  - Hypersensitivity [Recovered/Resolved]
  - Drug ineffective [Unknown]
